FAERS Safety Report 23134734 (Version 1)
Quarter: 2023Q4

REPORT INFORMATION
  Report Type: Report from Study
  Country: US (occurrence: US)
  Receive Date: 20231101
  Receipt Date: 20231101
  Transmission Date: 20240109
  Serious: Yes (Other)
  Sender: FDA-Public Use
  Company Number: US-002147023-NVSC2023US228776

PATIENT
  Sex: Female

DRUGS (1)
  1. ENTRESTO [Suspect]
     Active Substance: SACUBITRIL\VALSARTAN
     Indication: Cardiac failure
     Dosage: 1.5 DOSAGE FORM, BID
     Route: 048
     Dates: start: 202301

REACTIONS (6)
  - Arthropathy [Recovered/Resolved]
  - Asthenia [Recovered/Resolved]
  - Dizziness [Recovering/Resolving]
  - Dizziness postural [Not Recovered/Not Resolved]
  - Hypersensitivity [Recovered/Resolved]
  - Wrong technique in product usage process [Not Recovered/Not Resolved]

NARRATIVE: CASE EVENT DATE: 20230101
